FAERS Safety Report 7952826-5 (Version None)
Quarter: 2011Q4

REPORT INFORMATION
  Report Type: 
  Country: None (occurrence: None)
  Receive Date: 20111201
  Receipt Date: 20111116
  Transmission Date: 20120403
  Serious: Yes (Death, Hospitalization)
  Sender: FDA-Public Use
  Company Number: JP-SPECTRUM PHARMACEUTICALS, INC.-11-Z-JP-00142

PATIENT

DRUGS (6)
  1. ZEVALIN [Suspect]
     Indication: LYMPHOMA
     Dosage: 1 DF, SINGLE
     Route: 042
     Dates: start: 20110222, end: 20110222
  2. ZEVALIN [Suspect]
     Dosage: 1 DF, SINGLE
     Route: 042
     Dates: start: 20110215, end: 20110215
  3. POLARAMINE                         /00043702/ [Concomitant]
     Dosage: UNK
     Dates: start: 20110215, end: 20110222
  4. RITUXIMAB [Suspect]
     Dosage: UNK, SINGLE
     Route: 041
     Dates: start: 20110215, end: 20110215
  5. LOXONIN                            /00890701/ [Concomitant]
     Dosage: UNK
     Dates: start: 20110215, end: 20110222
  6. RITUXIMAB [Suspect]
     Indication: LYMPHOMA
     Dosage: UNK, SINGLE
     Route: 041
     Dates: start: 20110222, end: 20110222

REACTIONS (6)
  - NEUTROPHIL COUNT DECREASED [None]
  - HAEMOGLOBIN DECREASED [None]
  - HEPATIC ENZYME INCREASED [None]
  - JAUNDICE [None]
  - WHITE BLOOD CELL COUNT DECREASED [None]
  - PLATELET COUNT DECREASED [None]
